FAERS Safety Report 17552298 (Version 1)
Quarter: 2020Q1

REPORT INFORMATION
  Report Type: Spontaneous
  Country: SK (occurrence: SK)
  Receive Date: 20200317
  Receipt Date: 20200317
  Transmission Date: 20200409
  Serious: Yes (Other)
  Sender: FDA-Public Use
  Company Number: SK-BAUSCH-BL-2020-007470

PATIENT
  Age: 57 Year
  Sex: Male

DRUGS (4)
  1. FIBRATE [Concomitant]
     Active Substance: UNSPECIFIED INGREDIENT
     Indication: DYSLIPIDAEMIA
     Route: 065
  2. METFORMIN HYDROCHLORIDE. [Suspect]
     Active Substance: METFORMIN HYDROCHLORIDE
     Indication: TYPE 2 DIABETES MELLITUS
     Route: 065
     Dates: start: 2014
  3. INSULIN GLARGINE [Suspect]
     Active Substance: INSULIN GLARGINE
     Indication: TYPE 2 DIABETES MELLITUS
     Dosage: 12-36 IU MORNING
     Route: 065
     Dates: start: 2018
  4. GLICLAZIDE [Suspect]
     Active Substance: GLICLAZIDE
     Indication: TYPE 2 DIABETES MELLITUS
     Route: 065
     Dates: start: 2017

REACTIONS (2)
  - Blood pressure increased [Unknown]
  - Weight increased [Unknown]

NARRATIVE: CASE EVENT DATE: 2014
